FAERS Safety Report 17412091 (Version 3)
Quarter: 2020Q3

REPORT INFORMATION
  Report Type: Spontaneous
  Country: US (occurrence: US)
  Receive Date: 20200213
  Receipt Date: 20200812
  Transmission Date: 20201102
  Serious: No
  Sender: FDA-Public Use
  Company Number: US-BIOGEN-2018BI00516823

PATIENT
  Sex: Female

DRUGS (5)
  1. TECFIDERA [Suspect]
     Active Substance: DIMETHYL FUMARATE
     Route: 048
  2. TECFIDERA [Suspect]
     Active Substance: DIMETHYL FUMARATE
     Dosage: MAINTENANCE DOSE
     Route: 050
  3. TYSABRI [Suspect]
     Active Substance: NATALIZUMAB
     Indication: MULTIPLE SCLEROSIS
     Dosage: INFUSED OVER AN HOUR
     Route: 050
     Dates: start: 20090821, end: 20100113
  4. TECFIDERA [Suspect]
     Active Substance: DIMETHYL FUMARATE
     Indication: MULTIPLE SCLEROSIS
     Dosage: STARTING DOSE
     Route: 050
  5. TECFIDERA [Suspect]
     Active Substance: DIMETHYL FUMARATE
     Route: 065
     Dates: start: 20131030

REACTIONS (10)
  - Balance disorder [Not Recovered/Not Resolved]
  - Diplopia [Unknown]
  - Gait disturbance [Not Recovered/Not Resolved]
  - Eye irritation [Not Recovered/Not Resolved]
  - Pupillary disorder [Unknown]
  - Urticaria [Recovered/Resolved]
  - Visual impairment [Unknown]
  - Neuralgia [Recovered/Resolved]
  - Vision blurred [Unknown]
  - Cognitive disorder [Unknown]
